FAERS Safety Report 16767985 (Version 1)
Quarter: 2019Q3

REPORT INFORMATION
  Report Type: Spontaneous
  Country: US (occurrence: US)
  Receive Date: 20190903
  Receipt Date: 20190903
  Transmission Date: 20191005
  Serious: No
  Sender: FDA-Public Use
  Company Number: US-FRESENIUS KABI-FK201909502

PATIENT
  Age: 23 Year
  Sex: Female
  Weight: 77.1 kg

DRUGS (1)
  1. TERBUTALINE SULFATE INJECTION, USP [Suspect]
     Active Substance: TERBUTALINE SULFATE
     Indication: PREMATURE LABOUR
     Route: 042
     Dates: start: 20190828, end: 20190828

REACTIONS (4)
  - Exposure during pregnancy [Unknown]
  - Blood pressure increased [Recovered/Resolved]
  - Incorrect route of product administration [Unknown]
  - Product use in unapproved indication [Unknown]

NARRATIVE: CASE EVENT DATE: 20190828
